FAERS Safety Report 8333762-1 (Version None)
Quarter: 2012Q2

REPORT INFORMATION
  Report Type: 
  Country: None (occurrence: None)
  Receive Date: 20120503
  Receipt Date: 20120423
  Transmission Date: 20120825
  Serious: Yes (Hospitalization, Other)
  Sender: FDA-Public Use
  Company Number: US-ELI_LILLY_AND_COMPANY-US201203005583

PATIENT
  Age: 65 Year
  Sex: Female
  Weight: 96.599 kg

DRUGS (5)
  1. OMEPRAZOLE [Concomitant]
     Dosage: 40 MG, UNK
  2. VITAMIN D [Concomitant]
     Dosage: 5000 U, UNK
  3. CITALOPRAM [Concomitant]
     Dosage: 40 MG, UNK
  4. DILTIAZEM [Concomitant]
     Dosage: 240 MG, UNK
  5. EVISTA [Suspect]
     Indication: OSTEOPOROSIS
     Dosage: UNK
     Route: 065

REACTIONS (3)
  - DEEP VEIN THROMBOSIS [None]
  - HIP FRACTURE [None]
  - FALL [None]
